FAERS Safety Report 6729101-X (Version None)
Quarter: 2010Q2

REPORT INFORMATION
  Report Type: 
  Country: None (occurrence: None)
  Receive Date: 20100517
  Receipt Date: 20100322
  Transmission Date: 20101027
  Serious: No
  Sender: FDA-Public Use
  Company Number: US-ABBOTT-10P-163-0634373-00

PATIENT
  Sex: Female

DRUGS (7)
  1. SIMCOR [Suspect]
     Indication: BLOOD CHOLESTEROL INCREASED
     Dosage: 500/20 MG AT BEDTIME
     Dates: start: 20100316
  2. AMBIEN [Concomitant]
     Indication: DRUG USE FOR UNKNOWN INDICATION
  3. PRILOSEC [Concomitant]
     Indication: DRUG USE FOR UNKNOWN INDICATION
  4. LOVAZA [Concomitant]
     Indication: DRUG USE FOR UNKNOWN INDICATION
  5. MVT [Concomitant]
     Indication: DRUG USE FOR UNKNOWN INDICATION
  6. BLOOD PRESSURE MEDICATIONS [Concomitant]
     Indication: DRUG USE FOR UNKNOWN INDICATION
  7. LUNESTA [Concomitant]
     Indication: DRUG USE FOR UNKNOWN INDICATION

REACTIONS (1)
  - FLUSHING [None]
